FAERS Safety Report 11686314 (Version 2)
Quarter: 2015Q4

REPORT INFORMATION
  Report Type: Spontaneous
  Country: IT (occurrence: IT)
  Receive Date: 20151030
  Receipt Date: 20151112
  Transmission Date: 20160304
  Serious: Yes (Hospitalization)
  Sender: FDA-Public Use
  Company Number: IT-SA-2015SA167507

PATIENT
  Age: 86 Year
  Sex: Female

DRUGS (9)
  1. PANTOPRAZOLE SODIUM. [Concomitant]
     Active Substance: PANTOPRAZOLE SODIUM
  2. LANTUS [Concomitant]
     Active Substance: INSULIN GLARGINE
  3. PERIDON [Concomitant]
     Active Substance: DOMPERIDONE
  4. ATENOLOL. [Concomitant]
     Active Substance: ATENOLOL
  5. LANOXIN [Concomitant]
     Active Substance: DIGOXIN
  6. LASIX [Suspect]
     Active Substance: FUROSEMIDE
     Route: 065
  7. COUMADIN [Suspect]
     Active Substance: WARFARIN SODIUM
     Indication: ATRIAL FIBRILLATION
     Route: 048
  8. GLUCOBAY [Concomitant]
     Active Substance: ACARBOSE
     Route: 048
  9. NOVONORM [Concomitant]
     Active Substance: REPAGLINIDE
     Route: 048

REACTIONS (5)
  - Haematemesis [Unknown]
  - Decreased appetite [Unknown]
  - Hyponatraemia [Unknown]
  - Blood osmolarity decreased [Unknown]
  - Dysphagia [Unknown]

NARRATIVE: CASE EVENT DATE: 20150927
